FAERS Safety Report 5399948-3 (Version None)
Quarter: 2007Q3

REPORT INFORMATION
  Report Type: 
  Country: None (occurrence: None)
  Receive Date: 20070730
  Receipt Date: 20070720
  Transmission Date: 20080115
  Serious: Yes (Other)
  Sender: FDA-Public Use
  Company Number: US-JNJFOC-20070705152

PATIENT
  Sex: Male
  Weight: 83.01 kg

DRUGS (2)
  1. FENTANYL TRANSDERMAL SYSTEM [Suspect]
     Indication: PERINEAL PAIN
     Route: 062
  2. NEURONTIN [Suspect]
     Indication: PAIN
     Route: 048

REACTIONS (14)
  - ASTHENIA [None]
  - COGNITIVE DISORDER [None]
  - DYSARTHRIA [None]
  - DYSPNOEA [None]
  - FATIGUE [None]
  - HALLUCINATION [None]
  - HEADACHE [None]
  - HOT FLUSH [None]
  - HYPERHIDROSIS [None]
  - INCORRECT DRUG ADMINISTRATION DURATION [None]
  - INSOMNIA [None]
  - PSYCHOMOTOR HYPERACTIVITY [None]
  - RETINAL DETACHMENT [None]
  - TREMOR [None]
